FAERS Safety Report 18465917 (Version 1)
Quarter: 2020Q4

REPORT INFORMATION
  Report Type: Spontaneous
  Country: US (occurrence: US)
  Receive Date: 20201105
  Receipt Date: 20201105
  Transmission Date: 20210114
  Serious: No
  Sender: FDA-Public Use
  Company Number: US-TEVA-2020-US-1846632

PATIENT

DRUGS (3)
  1. HYDROCORTISONE. [Suspect]
     Active Substance: HYDROCORTISONE
     Indication: DERMATITIS ATOPIC
     Dosage: APPLICATION TO AREAS
     Route: 065
     Dates: start: 2014
  2. MOMETASONE [Suspect]
     Active Substance: MOMETASONE
     Indication: DERMATITIS ATOPIC
     Dosage: APPLICATION TO AREAS/0:18 DAILY
     Route: 065
     Dates: start: 201412
  3. TRIAMCINOLONE [Suspect]
     Active Substance: TRIAMCINOLONE
     Indication: DERMATITIS ATOPIC
     Dosage: APPLICATION TO AREAS
     Route: 065
     Dates: start: 2014

REACTIONS (1)
  - Drug ineffective [Unknown]
